FAERS Safety Report 8169543-1 (Version None)
Quarter: 2012Q1

REPORT INFORMATION
  Report Type: 
  Country: None (occurrence: None)
  Receive Date: 20120104
  Receipt Date: 20111028
  Transmission Date: 20120608
  Serious: No
  Sender: FDA-Public Use
  Company Number: 2011HGS-002710

PATIENT
  Age: 51 Year
  Sex: Female
  Weight: 81.6475 kg

DRUGS (9)
  1. PREDNISONE [Concomitant]
  2. MORPHINE [Concomitant]
  3. PLAQUENIL (HYDROXYCHLOROQUINE SULFATE) (HYDROXYCHLOROQUINE SULFATE) [Concomitant]
  4. CYCLOBENZAPRINE HCL [Concomitant]
  5. CYMBALTA [Concomitant]
  6. ATIVAN (ATIVAN) (ATIVAN) [Concomitant]
  7. GABAPENTIN [Concomitant]
  8. HYDROCODONE (HYDROCODONE) (HYDROCODONE) [Concomitant]
  9. BENLYSTA [Suspect]
     Indication: SYSTEMIC LUPUS ERYTHEMATOSUS
     Dosage: 1IN 28 D, INTRAVENOUS DRIP
     Route: 041
     Dates: start: 20111014, end: 20111014

REACTIONS (6)
  - HYPERSENSITIVITY [None]
  - WHEEZING [None]
  - BLOOD PRESSURE DIASTOLIC INCREASED [None]
  - URTICARIA [None]
  - DYSPNOEA [None]
  - CHEST DISCOMFORT [None]
